FAERS Safety Report 6460875-1 (Version None)
Quarter: 2009Q4

REPORT INFORMATION
  Report Type: 
  Country: None (occurrence: None)
  Receive Date: 20091118
  Receipt Date: 20091118
  Transmission Date: 20100525
  Serious: Yes (Death)
  Sender: FDA-Public Use
  Company Number: AE-001-09

PATIENT
  Sex: Male
  Weight: 5.4 kg

DRUGS (1)
  1. BABYBIG [Suspect]
     Indication: BOTULISM
     Dosage: 405MG, ONCE, IV
     Route: 042
     Dates: start: 20091013

REACTIONS (4)
  - CARDIO-RESPIRATORY ARREST [None]
  - CONGENITAL ANOMALY [None]
  - LIPID METABOLISM DISORDER [None]
  - MULTI-ORGAN FAILURE [None]
